FAERS Safety Report 20699078 (Version 1)
Quarter: 2022Q2

REPORT INFORMATION
  Report Type: Spontaneous
  Country: US (occurrence: US)
  Receive Date: 20220412
  Receipt Date: 20220412
  Transmission Date: 20220721
  Serious: Yes (Other)
  Sender: FDA-Public Use
  Company Number: US-JNJFOC-20220401557

PATIENT
  Age: 3 Decade
  Sex: Male

DRUGS (7)
  1. SPRAVATO [Suspect]
     Active Substance: ESKETAMINE
     Indication: Depression
     Dosage: ^56 MG, 13 TOTAL DOSES^
     Dates: start: 20190418, end: 20190715
  2. SPRAVATO [Suspect]
     Active Substance: ESKETAMINE
     Dosage: ^84 MG, 2 TOTAL DOSES^
     Dates: start: 20190729, end: 20190812
  3. SPRAVATO [Suspect]
     Active Substance: ESKETAMINE
     Dosage: ^56 MG, 1 TOTAL DOSE^
     Dates: start: 20190822, end: 20190822
  4. SPRAVATO [Suspect]
     Active Substance: ESKETAMINE
     Dosage: ^84 MG, 57 TOTAL DOSES^
     Dates: start: 20190907, end: 20220325
  5. SPRAVATO [Suspect]
     Active Substance: ESKETAMINE
     Dosage: ^84 MG, 1 TOTAL DOSE^
     Dates: start: 20220331, end: 20220331
  6. CLOMIPRAMINE [Concomitant]
     Active Substance: CLOMIPRAMINE
     Route: 065
  7. ZOLOFT [Concomitant]
     Active Substance: SERTRALINE HYDROCHLORIDE
     Route: 065

REACTIONS (11)
  - Heart rate irregular [Unknown]
  - Muscle rigidity [Unknown]
  - Off label use [Unknown]
  - Drug monitoring procedure incorrectly performed [Unknown]
  - Sensory disturbance [Unknown]
  - Coordination abnormal [Unknown]
  - Cognitive disorder [Unknown]
  - Pain [Unknown]
  - Hypoaesthesia [Unknown]
  - Dizziness [Unknown]
  - Dissociation [Unknown]

NARRATIVE: CASE EVENT DATE: 20220201
